FAERS Safety Report 8462373-2 (Version None)
Quarter: 2012Q2

REPORT INFORMATION
  Report Type: 
  Country: None (occurrence: None)
  Receive Date: 20120625
  Receipt Date: 20120618
  Transmission Date: 20120825
  Serious: Yes (Other)
  Sender: FDA-Public Use
  Company Number: BR-PFIZER INC-2012095726

PATIENT
  Age: 65 Year
  Sex: Female
  Weight: 53 kg

DRUGS (4)
  1. SUTENT [Suspect]
     Indication: RENAL CELL CARCINOMA
     Dosage: 50 MG, CYCLIC (4 BY 2), ONCE DAILY
     Route: 048
     Dates: start: 20120402
  2. MORPHINE [Concomitant]
  3. FLUDROCORTISONE [Concomitant]
     Dosage: 5 MG DAILY
  4. LEVOTHYROXINE SODIUM [Concomitant]
     Dosage: 75 MG, 1X/DAY (IN THE MORNING, FASTING)

REACTIONS (11)
  - ORAL PAIN [None]
  - OEDEMA PERIPHERAL [None]
  - ABDOMINAL PAIN UPPER [None]
  - DYSSTASIA [None]
  - NAUSEA [None]
  - ASTHENIA [None]
  - FATIGUE [None]
  - ORAL MUCOSAL BLISTERING [None]
  - DIARRHOEA [None]
  - WEIGHT DECREASED [None]
  - DECREASED APPETITE [None]
